FAERS Safety Report 5773868-4 (Version None)
Quarter: 2008Q2

REPORT INFORMATION
  Report Type: 
  Country: None (occurrence: None)
  Receive Date: 20080616
  Receipt Date: 20080611
  Transmission Date: 20081010
  Serious: Yes (Life-Threatening, Hospitalization, Disabling, Other)
  Sender: FDA-Public Use
  Company Number: A0713846A

PATIENT
  Age: 31 Year
  Sex: Female

DRUGS (7)
  1. EPZICOM [Suspect]
     Indication: HIV INFECTION
     Dosage: 1TAB PER DAY
     Route: 048
  2. RETROVIR [Concomitant]
  3. PROCRIT [Concomitant]
  4. XOPENEX [Concomitant]
  5. DARUNAVIR [Concomitant]
  6. LASIX [Concomitant]
  7. CONCURRENT MEDICATIONS [Concomitant]

REACTIONS (2)
  - RENAL FAILURE ACUTE [None]
  - RENAL IMPAIRMENT [None]
